FAERS Safety Report 12244733 (Version 1)
Quarter: 2016Q2

REPORT INFORMATION
  Report Type: Spontaneous
  Country: US (occurrence: None)
  Receive Date: 20160406
  Receipt Date: 20160406
  Transmission Date: 20160815
  Serious: Yes (Hospitalization, Disabling)
  Sender: FDA-Public Use
  Company Number: None

PATIENT
  Age: 46 Year
  Sex: Male

DRUGS (20)
  1. PROVIGIL [Concomitant]
     Active Substance: MODAFINIL
  2. EFFEXOR [Suspect]
     Active Substance: VENLAFAXINE HYDROCHLORIDE
     Indication: PANIC ATTACK
     Dosage: EFFEXOR - STRENGTH 300 MG?1 AM START - ONCE AM?BY MOUTH
     Route: 048
     Dates: start: 2004, end: 20151126
  3. CLOPAK [Concomitant]
  4. EFFEXOR [Suspect]
     Active Substance: VENLAFAXINE HYDROCHLORIDE
     Indication: ANXIETY DISORDER
     Dosage: EFFEXOR - STRENGTH 300 MG?1 AM START - ONCE AM?BY MOUTH
     Route: 048
     Dates: start: 2004, end: 20151126
  5. EFFEXOR [Suspect]
     Active Substance: VENLAFAXINE HYDROCHLORIDE
     Indication: DEPRESSION
     Dosage: EFFEXOR - STRENGTH 300 MG?1 AM START - ONCE AM?BY MOUTH
     Route: 048
     Dates: start: 2004, end: 20151126
  6. TRAZODONE [Concomitant]
     Active Substance: TRAZODONE HYDROCHLORIDE
  7. EFFEXOR [Suspect]
     Active Substance: VENLAFAXINE HYDROCHLORIDE
     Indication: POST-TRAUMATIC STRESS DISORDER
     Dosage: EFFEXOR - STRENGTH 300 MG?1 AM START - ONCE AM?BY MOUTH
     Route: 048
     Dates: start: 2004, end: 20151126
  8. EFFEXOR [Suspect]
     Active Substance: VENLAFAXINE HYDROCHLORIDE
     Indication: PERSONALITY DISORDER
     Dosage: EFFEXOR - STRENGTH 300 MG?1 AM START - ONCE AM?BY MOUTH
     Route: 048
     Dates: start: 2004, end: 20151126
  9. XANAX [Concomitant]
     Active Substance: ALPRAZOLAM
  10. LEVOXAL [Concomitant]
  11. ASPIRIN. [Concomitant]
     Active Substance: ASPIRIN
  12. TYLENOL [Concomitant]
     Active Substance: ACETAMINOPHEN
  13. STOVAL [Concomitant]
  14. PAXIL [Concomitant]
     Active Substance: PAROXETINE HYDROCHLORIDE
  15. ARTENAL [Concomitant]
  16. RISPERDAL [Concomitant]
     Active Substance: RISPERIDONE
  17. EFFEXOR [Suspect]
     Active Substance: VENLAFAXINE HYDROCHLORIDE
     Indication: PARANOIA
     Dosage: EFFEXOR - STRENGTH 300 MG?1 AM START - ONCE AM?BY MOUTH
     Route: 048
     Dates: start: 2004, end: 20151126
  18. WELLBUTRIN [Concomitant]
     Active Substance: BUPROPION HYDROCHLORIDE
  19. DEPACOTE [Concomitant]
  20. AMBIEN [Concomitant]
     Active Substance: ZOLPIDEM TARTRATE

REACTIONS (9)
  - Mental disorder [None]
  - Hypoaesthesia [None]
  - Personality disorder [None]
  - Anger [None]
  - Memory impairment [None]
  - Homicide [None]
  - Loss of consciousness [None]
  - Emotional disorder [None]
  - Abnormal behaviour [None]

NARRATIVE: CASE EVENT DATE: 2009
